FAERS Safety Report 13542100 (Version 1)
Quarter: 2017Q2

REPORT INFORMATION
  Report Type: Report from Study
  Country: US (occurrence: US)
  Receive Date: 20170512
  Receipt Date: 20170512
  Transmission Date: 20170830
  Serious: Yes (Other)
  Sender: FDA-Public Use
  Company Number: US-BRISTOL-MYERS SQUIBB COMPANY-BMS-2017-040696

PATIENT
  Age: 67 Year
  Sex: Female

DRUGS (2)
  1. IPILIMUMAB [Suspect]
     Active Substance: IPILIMUMAB
     Indication: MALIGNANT MELANOMA
     Dosage: 187 MG, UNK
     Route: 065
     Dates: start: 20140826
  2. BEVACIZUMAB [Suspect]
     Active Substance: BEVACIZUMAB
     Indication: MALIGNANT MELANOMA
     Dosage: 936 MG, UNK
     Route: 065
     Dates: start: 20140826

REACTIONS (3)
  - Pain in extremity [Unknown]
  - Amylase increased [Unknown]
  - Localised oedema [Unknown]

NARRATIVE: CASE EVENT DATE: 20141007
